FAERS Safety Report 6518921-2 (Version None)
Quarter: 2009Q4

REPORT INFORMATION
  Report Type: 
  Country: None (occurrence: None)
  Receive Date: 20091218
  Receipt Date: 20091214
  Transmission Date: 20100525
  Serious: Yes (Hospitalization)
  Sender: FDA-Public Use
  Company Number: 2009SP041193

PATIENT
  Age: 44 Year
  Sex: Female
  Weight: 48 kg

DRUGS (2)
  1. TEMODAL [Suspect]
     Indication: BREAST CANCER METASTATIC
     Dosage: 110 MG;QD;PO
     Route: 048
     Dates: start: 20090928
  2. BACTRIM [Concomitant]

REACTIONS (4)
  - CONSTIPATION [None]
  - INTRACRANIAL PRESSURE INCREASED [None]
  - NAUSEA [None]
  - VOMITING [None]
